FAERS Safety Report 5425099-5 (Version None)
Quarter: 2007Q3

REPORT INFORMATION
  Report Type: 
  Country: None (occurrence: None)
  Receive Date: 20070824
  Receipt Date: 20070813
  Transmission Date: 20080115
  Serious: Yes (Congenital Anomaly)
  Sender: FDA-Public Use
  Company Number: CH-JNJFOC-20070803424

PATIENT

DRUGS (7)
  1. CONCERTA [Suspect]
     Indication: DRUG EXPOSURE DURING PREGNANCY
  2. CIPRALEX [Suspect]
     Indication: DRUG EXPOSURE DURING PREGNANCY
  3. ZYPREXA [Suspect]
     Indication: DRUG EXPOSURE DURING PREGNANCY
  4. METHADONE HCL [Suspect]
     Indication: DRUG EXPOSURE DURING PREGNANCY
     Route: 048
  5. SERESTA [Suspect]
     Indication: DRUG EXPOSURE DURING PREGNANCY
  6. VALIUM [Suspect]
     Indication: ABNORMAL BEHAVIOUR
  7. VALIUM [Suspect]
     Indication: DRUG EXPOSURE DURING PREGNANCY

REACTIONS (1)
  - HEART DISEASE CONGENITAL [None]
